FAERS Safety Report 20369917 (Version 4)
Quarter: 2022Q1

REPORT INFORMATION
  Report Type: Spontaneous
  Country: US (occurrence: US)
  Receive Date: 20220124
  Receipt Date: 20220323
  Transmission Date: 20220423
  Serious: Yes (Death, Hospitalization, Other)
  Sender: FDA-Public Use
  Company Number: US-PFIZER INC-202200057407

PATIENT
  Age: 88 Year
  Sex: Male

DRUGS (3)
  1. VYNDAMAX [Suspect]
     Active Substance: TAFAMIDIS
     Dosage: 61 MG
  2. VYNDAMAX [Suspect]
     Active Substance: TAFAMIDIS
     Dosage: 61 MG
     Dates: start: 20211231
  3. VYNDAMAX [Suspect]
     Active Substance: TAFAMIDIS
     Dosage: UNK

REACTIONS (15)
  - Cardiac failure congestive [Fatal]
  - Cirrhosis alcoholic [Unknown]
  - Ascites [Unknown]
  - Tachycardia [Unknown]
  - Cardiac flutter [Unknown]
  - Fall [Unknown]
  - Dyspnoea [Unknown]
  - Fatigue [Unknown]
  - Decreased appetite [Unknown]
  - Cough [Unknown]
  - Orthopnoea [Unknown]
  - Arthralgia [Unknown]
  - Joint stiffness [Unknown]
  - Muscular weakness [Unknown]
  - Product dose omission issue [Unknown]

NARRATIVE: CASE EVENT DATE: 20220311
